FAERS Safety Report 9294614 (Version 2)
Quarter: 2013Q2

REPORT INFORMATION
  Report Type: Spontaneous
  Country: US (occurrence: US)
  Receive Date: 20130517
  Receipt Date: 20130605
  Transmission Date: 20140414
  Serious: No
  Sender: FDA-Public Use
  Company Number: US-PFIZER INC-2013151077

PATIENT
  Age: 76 Year
  Sex: Female
  Weight: 56.69 kg

DRUGS (7)
  1. EFFEXOR XR [Suspect]
     Indication: DEPRESSION
     Dosage: 75 MG, 1X/DAY
     Route: 048
     Dates: start: 2004
  2. EFFEXOR XR [Suspect]
     Dosage: 150 MG, 1X/DAY
     Route: 048
     Dates: end: 201304
  3. MONOPRIL [Concomitant]
     Indication: HYPERTENSION
     Dosage: UNK
  4. PRAVASTATIN [Concomitant]
     Indication: BLOOD CHOLESTEROL INCREASED
     Dosage: UNK
  5. METOPROLOL [Concomitant]
     Indication: CARDIAC DISORDER
     Dosage: UNK
  6. PLAVIX [Concomitant]
     Indication: CARDIAC DISORDER
     Dosage: UNK
  7. NEXIUM [Concomitant]
     Indication: DYSPEPSIA
     Dosage: UNK

REACTIONS (4)
  - Nervousness [Not Recovered/Not Resolved]
  - Withdrawal syndrome [Not Recovered/Not Resolved]
  - Blood cholesterol decreased [Unknown]
  - Therapeutic response unexpected [Unknown]
